FAERS Safety Report 8364265-6 (Version None)
Quarter: 2012Q2

REPORT INFORMATION
  Report Type: 
  Country: None (occurrence: None)
  Receive Date: 20120516
  Receipt Date: 20120510
  Transmission Date: 20120825
  Serious: Yes (Hospitalization)
  Sender: FDA-Public Use
  Company Number: US-BAYER-2011-119772

PATIENT
  Age: 24 Year
  Sex: Female
  Weight: 73 kg

DRUGS (1)
  1. YAZ [Suspect]
     Indication: CONTRACEPTION
     Dosage: UNK
     Dates: start: 20081101, end: 20090101

REACTIONS (7)
  - PULMONARY INFARCTION [None]
  - PAIN [None]
  - ANXIETY [None]
  - PULMONARY EMBOLISM [None]
  - DEPRESSION [None]
  - INJURY [None]
  - EMOTIONAL DISTRESS [None]
